FAERS Safety Report 5955916-1 (Version None)
Quarter: 2008Q4

REPORT INFORMATION
  Report Type: 
  Country: None (occurrence: None)
  Receive Date: 20081113
  Receipt Date: 20081104
  Transmission Date: 20090506
  Serious: Yes (Hospitalization)
  Sender: FDA-Public Use
  Company Number: 2008SP002756

PATIENT
  Age: 52 Year
  Sex: Female
  Weight: 77.1 kg

DRUGS (5)
  1. LUNESTA [Suspect]
     Indication: INSOMNIA
     Dosage: MS;HS;ORAL; 2 MG;HS;ORAL
     Route: 048
     Dates: start: 20050101, end: 20080801
  2. LUNESTA [Suspect]
     Indication: INSOMNIA
     Dosage: MS;HS;ORAL; 2 MG;HS;ORAL
     Route: 048
     Dates: start: 20080801
  3. DESMOPRESSIN ACETATE [Concomitant]
  4. HYDROCORTISONE [Concomitant]
  5. PREV MEDS [Concomitant]

REACTIONS (4)
  - ALOPECIA [None]
  - BLOOD POTASSIUM DECREASED [None]
  - BLOOD SODIUM DECREASED [None]
  - SOMNOLENCE [None]
